FAERS Safety Report 19841393 (Version 6)
Quarter: 2025Q4

REPORT INFORMATION
  Report Type: Report from Study
  Country: US (occurrence: US)
  Receive Date: 20210915
  Receipt Date: 20251222
  Transmission Date: 20260117
  Serious: Yes (Hospitalization, Other)
  Sender: TAKEDA
  Company Number: US-TAKEDA-2021TUS056855

PATIENT
  Sex: Female

DRUGS (4)
  1. TEDUGLUTIDE [Suspect]
     Active Substance: TEDUGLUTIDE
     Indication: Dyspepsia
     Dosage: 3.145 MILLIGRAM, QD
     Dates: start: 20210819
  2. TEDUGLUTIDE [Suspect]
     Active Substance: TEDUGLUTIDE
     Indication: Short-bowel syndrome
     Dosage: 3.145 MILLIGRAM, QD
     Dates: start: 202108
  3. TEDUGLUTIDE [Suspect]
     Active Substance: TEDUGLUTIDE
     Indication: Melaena
     Dosage: 0.15 MILLILITER, QD
  4. TEDUGLUTIDE [Suspect]
     Active Substance: TEDUGLUTIDE

REACTIONS (6)
  - Pneumonia [Unknown]
  - Stoma complication [Unknown]
  - Joint swelling [Unknown]
  - Headache [Unknown]
  - Influenza [Unknown]
  - Product dose omission issue [Unknown]
